FAERS Safety Report 24298128 (Version 1)
Quarter: 2024Q3

REPORT INFORMATION
  Report Type: Spontaneous
  Country: GB (occurrence: GB)
  Receive Date: 20240909
  Receipt Date: 20240909
  Transmission Date: 20241017
  Serious: Yes (Other)
  Sender: MYLAN
  Company Number: GB-MYLANLABS-2024M1081539

PATIENT
  Sex: Male

DRUGS (1)
  1. CLOZARIL [Suspect]
     Active Substance: CLOZAPINE
     Indication: Schizophrenia
     Dosage: UNK
     Route: 048
     Dates: start: 20240731

REACTIONS (5)
  - Mental impairment [Unknown]
  - Cognitive disorder [Unknown]
  - Sedation [Unknown]
  - Drug intolerance [Unknown]
  - Electrocardiogram abnormal [Unknown]
